FAERS Safety Report 7573096-6 (Version None)
Quarter: 2011Q2

REPORT INFORMATION
  Report Type: 
  Country: None (occurrence: None)
  Receive Date: 20110627
  Receipt Date: 20110620
  Transmission Date: 20111010
  Serious: Yes (Hospitalization, Other)
  Sender: FDA-Public Use
  Company Number: US-SANOFI-AVENTIS-2011SA035723

PATIENT
  Age: 50 Year
  Sex: Female

DRUGS (8)
  1. LOVENOX [Suspect]
     Indication: DEEP VEIN THROMBOSIS
     Route: 065
     Dates: start: 20070101, end: 20110601
  2. LOVENOX [Suspect]
     Route: 065
     Dates: start: 20110601
  3. OXYMORPHONE HYDROCHLORIDE [Concomitant]
  4. ASPIRIN [Concomitant]
  5. PREDNISONE [Concomitant]
  6. LOVENOX [Suspect]
     Route: 065
  7. SYNTHROID [Concomitant]
  8. PLAQUENIL [Concomitant]

REACTIONS (5)
  - GASTROINTESTINAL HAEMORRHAGE [None]
  - CHEST PAIN [None]
  - COMPARTMENT SYNDROME [None]
  - INJECTION SITE HAEMATOMA [None]
  - COAGULATION TIME PROLONGED [None]
